FAERS Safety Report 12716220 (Version 1)
Quarter: 2016Q3

REPORT INFORMATION
  Report Type: Report from Study
  Country: PH (occurrence: PH)
  Receive Date: 20160906
  Receipt Date: 20160906
  Transmission Date: 20161109
  Serious: Yes (Hospitalization, Other)
  Sender: FDA-Public Use
  Company Number: PHHY2016PH118700

PATIENT
  Age: 25 Year
  Sex: Male

DRUGS (1)
  1. TASIGNA [Suspect]
     Active Substance: NILOTINIB
     Indication: CHRONIC MYELOID LEUKAEMIA
     Dosage: 600 MG, QD
     Route: 048
     Dates: start: 20141111, end: 20150902

REACTIONS (3)
  - Hypertension [Recovered/Resolved]
  - Pyrexia [Recovered/Resolved]
  - Leptospirosis [Recovered/Resolved]

NARRATIVE: CASE EVENT DATE: 201509
